FAERS Safety Report 12613676 (Version 2)
Quarter: 2017Q1

REPORT INFORMATION
  Report Type: Report from Study
  Country: JP (occurrence: JP)
  Receive Date: 20160802
  Receipt Date: 20170104
  Transmission Date: 20170428
  Serious: Yes (Other)
  Sender: FDA-Public Use
  Company Number: JP-OTSUKA-2015_004785

PATIENT
  Age: 44 Year
  Sex: Male
  Weight: 63.3 kg

DRUGS (3)
  1. TOLVAPTAN [Suspect]
     Active Substance: TOLVAPTAN
     Indication: CONGENITAL CYSTIC KIDNEY DISEASE
     Dosage: 7.5 MG, QD, IN THE MORNING
     Route: 048
     Dates: start: 20141010, end: 20160902
  2. OLMETEC [Concomitant]
     Active Substance: OLMESARTAN MEDOXOMIL
     Indication: PRODUCT USED FOR UNKNOWN INDICATION
     Dosage: 20 MG, QD
     Route: 048
  3. KREMEZIN [Concomitant]
     Active Substance: ACTIVATED CHARCOAL
     Indication: PRODUCT USED FOR UNKNOWN INDICATION
     Dosage: 6 G, QD
     Route: 048

REACTIONS (4)
  - Chronic kidney disease [Recovered/Resolved]
  - Dehydration [Unknown]
  - Glomerular filtration rate decreased [Unknown]
  - Blood sodium increased [Recovered/Resolved]

NARRATIVE: CASE EVENT DATE: 20141011
